FAERS Safety Report 11086916 (Version 1)
Quarter: 2015Q2

REPORT INFORMATION
  Report Type: Spontaneous
  Country: US (occurrence: None)
  Receive Date: 20150501
  Receipt Date: 20150501
  Transmission Date: 20150821
  Serious: No
  Sender: FDA-Public Use
  Company Number: None

PATIENT
  Sex: Female

DRUGS (1)
  1. HARVONI [Suspect]
     Active Substance: LEDIPASVIR\SOFOSBUVIR
     Indication: HEPATITIS C
     Route: 048
     Dates: start: 20141213, end: 20150207

REACTIONS (8)
  - Pyrexia [None]
  - Dysgeusia [None]
  - Neuropathy peripheral [None]
  - Vomiting [None]
  - Loss of consciousness [None]
  - VIIth nerve paralysis [None]
  - Nausea [None]
  - Asthenia [None]
